FAERS Safety Report 8936280 (Version 2)
Quarter: 2012Q4

REPORT INFORMATION
  Report Type: 
  Country: US (occurrence: US)
  Receive Date: 20121130
  Receipt Date: 20121220
  Transmission Date: 20130627
  Serious: No
  Sender: FDA-Public Use
  Company Number: US-PFIZER INC-2012299928

PATIENT
  Age: 61 Year
  Sex: Female
  Weight: 77.1 kg

DRUGS (5)
  1. LYRICA [Suspect]
     Indication: FIBROMYALGIA
     Dosage: 300 mg, 2x/day
  2. LYRICA [Suspect]
     Dosage: UNK
  3. CYMBALTA [Suspect]
     Indication: FIBROMYALGIA
     Dosage: UNK
     Dates: start: 2007, end: 2007
  4. EFFEXOR [Concomitant]
     Indication: FIBROMYALGIA
     Dosage: 300 mg, 2x/day
     Dates: start: 1996
  5. CELEBREX [Concomitant]
     Indication: ARTHRITIS
     Dosage: 200 mg, 2x/day

REACTIONS (13)
  - Drug ineffective [Unknown]
  - Tremor [Recovered/Resolved]
  - Malaise [Recovered/Resolved]
  - Insomnia [Recovered/Resolved]
  - Headache [Recovered/Resolved]
  - Migraine [Recovered/Resolved]
  - Musculoskeletal pain [Recovered/Resolved]
  - Neck pain [Recovered/Resolved]
  - Diarrhoea [Recovered/Resolved]
  - Vomiting [Recovered/Resolved]
  - Nausea [Recovered/Resolved]
  - Hot flush [Recovered/Resolved]
  - Vitamin D decreased [Unknown]
